FAERS Safety Report 9310363 (Version 1)
Quarter: 2013Q2

REPORT INFORMATION
  Report Type: Spontaneous
  Country: US (occurrence: US)
  Receive Date: 20130527
  Receipt Date: 20130527
  Transmission Date: 20140414
  Serious: Yes (Other)
  Sender: FDA-Public Use
  Company Number: US-BRISTOL-MYERS SQUIBB COMPANY-18905810

PATIENT
  Age: 62 Year
  Sex: Female
  Weight: 56.69 kg

DRUGS (1)
  1. ABATACEPT SUBQ INJECTION 125MG/ML [Suspect]
     Indication: RHEUMATOID ARTHRITIS
     Dosage: LAST DOSE:13MAY2013?5 INJ
     Route: 058
     Dates: start: 20130415

REACTIONS (2)
  - Sinus disorder [Unknown]
  - Drug ineffective [Unknown]
